FAERS Safety Report 4740220-X (Version None)
Quarter: 2005Q3

REPORT INFORMATION
  Report Type: 
  Country: None (occurrence: None)
  Receive Date: 20050810
  Receipt Date: 20050301
  Transmission Date: 20060218
  Serious: No
  Sender: FDA-Public Use
  Company Number: US-GLAXOSMITHKLINE-A0547652A

PATIENT
  Sex: Female

DRUGS (1)
  1. PAXIL [Suspect]
     Indication: DRUG USE FOR UNKNOWN INDICATION
     Route: 048
     Dates: start: 20050215

REACTIONS (6)
  - ASTHENIA [None]
  - DISORIENTATION [None]
  - DRY SKIN [None]
  - EYE SWELLING [None]
  - SKIN DISORDER [None]
  - SWELLING [None]
